FAERS Safety Report 6075263-X (Version None)
Quarter: 2009Q1

REPORT INFORMATION
  Report Type: 
  Country: None (occurrence: None)
  Receive Date: 20090121
  Receipt Date: 20080205
  Transmission Date: 20090719
  Serious: Yes (Other)
  Sender: FDA-Public Use
  Company Number: US-WYE-H02472908

PATIENT
  Age: 51 Year
  Sex: Female

DRUGS (3)
  1. PREMPHASE 14/14 [Suspect]
  2. CYCRIN [Suspect]
  3. PROVERA [Suspect]

REACTIONS (1)
  - BREAST CANCER [None]
